FAERS Safety Report 15244675 (Version 1)
Quarter: 2018Q3

REPORT INFORMATION
  Report Type: Spontaneous
  Country: GB (occurrence: GB)
  Receive Date: 20180713
  Receipt Date: 20180713
  Transmission Date: 20181010
  Serious: Yes (Hospitalization)
  Sender: FDA-Public Use
  Company Number: None

PATIENT
  Age: 38 Year
  Sex: Female
  Weight: 60 kg

DRUGS (1)
  1. CIPRO [Suspect]
     Active Substance: CIPROFLOXACIN HYDROCHLORIDE
     Indication: URINARY TRACT INFECTION
     Dosage: ?          QUANTITY:9 TABLET(S);?
     Route: 048
     Dates: start: 20180213, end: 20180217

REACTIONS (6)
  - Rash [None]
  - Burning sensation [None]
  - Adverse drug reaction [None]
  - Vertigo [None]
  - Swelling [None]
  - Pain [None]

NARRATIVE: CASE EVENT DATE: 20180220
